FAERS Safety Report 6012321-X (Version None)
Quarter: 2008Q4

REPORT INFORMATION
  Report Type: 
  Country: None (occurrence: None)
  Receive Date: 20081218
  Receipt Date: 20080904
  Transmission Date: 20090506
  Serious: No
  Sender: FDA-Public Use
  Company Number: US-ASTRAZENECA-2008UW09732

PATIENT
  Age: 58 Year
  Sex: Female
  Weight: 108.9 kg

DRUGS (12)
  1. SYMBICORT [Suspect]
     Indication: PULMONARY CONGESTION
     Dosage: 160/4.5 UG BID
     Route: 055
  2. ZITHROMAX [Concomitant]
  3. ROBITUSSIN AC [Concomitant]
  4. VASOTEC [Concomitant]
  5. ATENOLOL [Concomitant]
  6. LEVOXYL [Concomitant]
  7. METFORMIN HCL [Concomitant]
  8. NOVOLOG [Concomitant]
  9. LANTUS [Concomitant]
  10. ZOCOR [Concomitant]
  11. LUMIGAN [Concomitant]
  12. COMBIGAN [Concomitant]

REACTIONS (2)
  - CHOKING [None]
  - INCORRECT DOSE ADMINISTERED [None]
